FAERS Safety Report 4863142-2 (Version None)
Quarter: 2005Q4

REPORT INFORMATION
  Report Type: 
  Country: None (occurrence: None)
  Receive Date: 20051201
  Receipt Date: 20050907
  Transmission Date: 20060501
  Serious: Yes (Hospitalization)
  Sender: FDA-Public Use
  Company Number: 200507883

PATIENT
  Age: 8 Year
  Sex: Male

DRUGS (4)
  1. ALPHAGAN [Suspect]
     Indication: DRUG USE FOR UNKNOWN INDICATION
     Dosage: 2 DROP BID
     Dates: start: 20040302, end: 20050202
  2. AMERIDE [Concomitant]
  3. ADIRO [Concomitant]
  4. PANTOK [Concomitant]

REACTIONS (1)
  - HYPOTENSION [None]
